FAERS Safety Report 5738999-3 (Version None)
Quarter: 2008Q2

REPORT INFORMATION
  Report Type: 
  Country: None (occurrence: None)
  Receive Date: 20080515
  Receipt Date: 20080508
  Transmission Date: 20081010
  Serious: Yes (Hospitalization, Other)
  Sender: FDA-Public Use
  Company Number: US-ABBOTT-08P-163-0451144-00

PATIENT
  Sex: Male
  Weight: 27.694 kg

DRUGS (2)
  1. DEPAKOTE [Suspect]
     Indication: MIGRAINE
     Dosage: X 2 QHS
     Route: 048
     Dates: start: 20080402
  2. HYDROXERIA [Concomitant]
     Indication: MIGRAINE
     Route: 048
     Dates: start: 20070701

REACTIONS (1)
  - MIGRAINE [None]
